FAERS Safety Report 7508811-0 (Version None)
Quarter: 2011Q2

REPORT INFORMATION
  Report Type: 
  Country: None (occurrence: None)
  Receive Date: 20110527
  Receipt Date: 20091226
  Transmission Date: 20111010
  Serious: Yes (Death, Other)
  Sender: FDA-Public Use
  Company Number: US-BAYER-200943304NA

PATIENT
  Age: 64 Year
  Sex: Female
  Weight: 68.027 kg

DRUGS (22)
  1. LASIX [Concomitant]
     Dosage: 20 MG
     Route: 042
     Dates: start: 19950101, end: 19950101
  2. VANCOMYCIN [Concomitant]
     Dosage: 1 GM
     Route: 042
     Dates: start: 19950101, end: 19950101
  3. NITROGLYCERIN [Concomitant]
     Dosage: UNK
     Route: 041
     Dates: start: 19950101, end: 19950101
  4. TRASYLOL [Suspect]
     Indication: CORONARY ARTERY BYPASS
     Dosage: UNK
     Route: 042
     Dates: start: 19950101, end: 19950101
  5. HEPARIN [Concomitant]
     Dosage: 30,000 UNITS
     Route: 042
     Dates: start: 19950101, end: 19950101
  6. PLASMA [Concomitant]
     Dosage: 15 UNITS
     Route: 042
     Dates: start: 19950101, end: 19950101
  7. NPH INSULIN [Concomitant]
  8. ASPIRIN [Concomitant]
     Dosage: 82 MG DAILY
     Route: 048
  9. LASIX [Concomitant]
     Dosage: 40 MG
     Route: 048
  10. ZINACEF [Concomitant]
     Dosage: 1.5 GM
     Route: 042
     Dates: start: 19950101, end: 19950101
  11. INSULIN [Concomitant]
     Route: 041
  12. AMICAR [Concomitant]
     Dosage: 1 GM/HOUR
     Route: 042
     Dates: start: 19950101, end: 19950101
  13. PLATELETS [Concomitant]
     Dosage: 42 UNITS
     Dates: start: 19950101, end: 19950101
  14. CARDIZEM [Concomitant]
     Dosage: 180 MG DAILY
     Route: 048
  15. DOPAMINE HCL [Concomitant]
     Dosage: UNK
     Route: 041
     Dates: start: 19950101, end: 19950101
  16. LEVOPHED [Concomitant]
     Dosage: UNK
     Route: 041
     Dates: start: 19950102, end: 19950102
  17. MILRINONE [Concomitant]
     Dosage: 4 MG
     Route: 042
  18. CRYOPRECIPITATES [Concomitant]
     Dosage: 20 UNITS
     Route: 042
     Dates: start: 19950101, end: 19950101
  19. CAPTOPRIL [Concomitant]
     Dosage: 25 MG
     Route: 048
  20. NPH INSULIN [Concomitant]
     Dosage: 55 UNITS EVERY MORNING
     Route: 058
  21. EPINEPHRINE [Concomitant]
     Dosage: UNK
     Route: 041
     Dates: start: 19950102, end: 19950102
  22. RED BLOOD CELLS [Concomitant]
     Dosage: 24 UNITS
     Route: 042
     Dates: start: 19950101, end: 19950101

REACTIONS (7)
  - DEATH [None]
  - PAIN [None]
  - RENAL FAILURE ACUTE [None]
  - INJURY [None]
  - RENAL INJURY [None]
  - UNEVALUABLE EVENT [None]
  - RENAL FAILURE [None]
